FAERS Safety Report 20213637 (Version 1)
Quarter: 2021Q4

REPORT INFORMATION
  Report Type: Other
  Country: BR (occurrence: None)
  Receive Date: 20211221
  Receipt Date: 20211221
  Transmission Date: 20220303
  Serious: Yes (Hospitalization, Other)
  Sender: FDA-Public Use
  Company Number: BR-ROCHE-2978570

PATIENT

DRUGS (2)
  1. CAPECITABINE [Suspect]
     Active Substance: CAPECITABINE
     Indication: Colorectal adenocarcinoma
     Dosage: 2,000 MG/M2 (RANGE: 1,600-2,000 MG/M2)
     Route: 048
  2. OXALIPLATIN [Suspect]
     Active Substance: OXALIPLATIN
     Indication: Colorectal adenocarcinoma
     Dosage: RANGE: 100-130 MG/M2
     Route: 065

REACTIONS (4)
  - Diarrhoea [Unknown]
  - Enterocolitis [Unknown]
  - Rectal haemorrhage [Unknown]
  - Thrombocytopenia [Unknown]
